FAERS Safety Report 6734995-8 (Version None)
Quarter: 2010Q2

REPORT INFORMATION
  Report Type: 
  Country: None (occurrence: None)
  Receive Date: 20100521
  Receipt Date: 20100512
  Transmission Date: 20101027
  Serious: Yes (Other)
  Sender: FDA-Public Use
  Company Number: CA-PFIZER INC-2010059853

PATIENT
  Age: 53 Year
  Sex: Male

DRUGS (2)
  1. LYRICA [Suspect]
     Dosage: 75 MG, UNK
     Dates: start: 20100301
  2. LYRICA [Suspect]
     Dosage: 150 MG, UNK
     Dates: start: 20100101

REACTIONS (1)
  - FOOD ALLERGY [None]
